FAERS Safety Report 7942929-3 (Version None)
Quarter: 2011Q4

REPORT INFORMATION
  Report Type: 
  Country: None (occurrence: None)
  Receive Date: 20111122
  Receipt Date: 20110831
  Transmission Date: 20120403
  Serious: Yes (Other)
  Sender: FDA-Public Use
  Company Number: PHHY2011US68185

PATIENT
  Age: 59 Year
  Sex: Female
  Weight: 58.514 kg

DRUGS (11)
  1. LEVOTHYROXINE SODIUM [Concomitant]
  2. VITAMIN B12 [Concomitant]
  3. GILENYA [Suspect]
     Indication: RELAPSING-REMITTING MULTIPLE SCLEROSIS
     Dosage: 0.5 MG, QD, ORAL
     Route: 048
     Dates: start: 20110727, end: 20110727
  4. MULTIVITAMINS (ASCORBIC ACID, ERGOCALCIFEROL, FOLIC ACID, NICOTINAMIDE [Concomitant]
  5. VITAMIN D [Concomitant]
  6. FISH OIL (FISH OIL) [Concomitant]
  7. LYRICA [Concomitant]
  8. SKELAXIN [Concomitant]
  9. BENADRYL (AMMONIUM CHLORIDE, DIPHENHYDRAMINE HYDROCHLORIDE, MENTHOL SO [Concomitant]
  10. NORTRIPTYLINE HCL [Concomitant]
  11. BACLOFEN [Concomitant]

REACTIONS (4)
  - ATRIOVENTRICULAR BLOCK SECOND DEGREE [None]
  - BRADYCARDIA [None]
  - HEART RATE DECREASED [None]
  - BLOOD PRESSURE DECREASED [None]
